FAERS Safety Report 4546889-7 (Version None)
Quarter: 2005Q1

REPORT INFORMATION
  Report Type: 
  Country: None (occurrence: None)
  Receive Date: 20050105
  Receipt Date: 20041216
  Transmission Date: 20050727
  Serious: Yes (Death, Hospitalization, Other)
  Sender: FDA-Public Use
  Company Number: GBS041115902

PATIENT
  Age: 60 Year
  Sex: Male

DRUGS (10)
  1. OLANZAPINE [Suspect]
     Indication: DEPRESSION
     Dosage: 10 MG/2 DAY
  2. TRAZADONE 9TRAZADONE0 [Concomitant]
  3. TENORMIN (ATENOLOL EG) [Concomitant]
  4. LIPOSTAT (PRAVASTATIN [Concomitant]
  5. RAMIPRIL [Concomitant]
  6. ASPIRIN [Concomitant]
  7. DIGOXIN [Concomitant]
  8. ATROVENT [Concomitant]
  9. WARFARIN [Concomitant]
  10. RISPERDAL [Concomitant]

REACTIONS (10)
  - EATING DISORDER [None]
  - GASTRIC DILATATION [None]
  - INTESTINAL DILATATION [None]
  - PNEUMONIA [None]
  - REFUSAL OF TREATMENT BY PATIENT [None]
  - RESPIRATORY DISTRESS [None]
  - SEPSIS [None]
  - TOOTH ABSCESS [None]
  - VOMITING [None]
  - WEIGHT DECREASED [None]
